FAERS Safety Report 7605101-2 (Version None)
Quarter: 2011Q3

REPORT INFORMATION
  Report Type: 
  Country: None (occurrence: None)
  Receive Date: 20110713
  Receipt Date: 20101202
  Transmission Date: 20111222
  Serious: Yes (Death, Hospitalization, Other)
  Sender: FDA-Public Use
  Company Number: US-BAYER-200838946NA

PATIENT
  Age: 79 Year
  Sex: Female
  Weight: 54.422 kg

DRUGS (19)
  1. DIGOXIN [Concomitant]
     Dosage: 125 MG, QOD
     Route: 048
  2. TRASYLOL [Suspect]
     Indication: AORTIC VALVE REPLACEMENT
     Dosage: 200 ML, LOADING DOSE
     Route: 042
     Dates: start: 20071001, end: 20071001
  3. LOPRESSOR [Concomitant]
     Dosage: 25 MG, UNK
  4. CALCIUM CHLORIDE [Concomitant]
     Dosage: 500 MG, UNK
     Route: 042
     Dates: start: 20071001
  5. PHENYLEPHRINE HCL [Concomitant]
     Dosage: UNK
     Route: 042
     Dates: start: 20071001
  6. INSULIN [Concomitant]
     Dosage: 8 U, UNK
     Route: 042
     Dates: start: 20071001
  7. PLATELETS [Concomitant]
     Dosage: 1 U, UNK
     Route: 042
     Dates: start: 20071001, end: 20071001
  8. PROTAMINE SULFATE [Concomitant]
     Dosage: 250 MG, UNK
     Route: 042
     Dates: start: 20071001
  9. TRASYLOL [Suspect]
     Indication: CORONARY ARTERY BYPASS
     Dosage: 50 ML Q1HR
     Route: 042
     Dates: start: 20071001, end: 20071001
  10. PLAVIX [Concomitant]
     Dosage: 75 MG, UNK
     Route: 048
  11. LOVENOX [Concomitant]
     Dosage: 40 MG, UNK
     Route: 058
  12. NITROGLYCERIN [Concomitant]
     Dosage: UNK
     Route: 042
     Dates: start: 20071001
  13. LASIX [Concomitant]
     Dosage: 40 MG, UNK
     Route: 048
  14. RED BLOOD CELLS [Concomitant]
     Dosage: 2 U, UNK
     Route: 042
     Dates: start: 20071001, end: 20071001
  15. ZESTRIL [Concomitant]
     Dosage: 2.5 MG, UNK
     Route: 048
  16. VERSED [Concomitant]
     Dosage: 2 MG, UNK
     Route: 042
     Dates: start: 20071001
  17. TOPROL-XL [Concomitant]
     Dosage: 25 MG, UNK
     Route: 048
  18. EPINEPHRINE [Concomitant]
     Dosage: UNK
     Route: 042
     Dates: start: 20071001
  19. VISIPAQUE [Concomitant]

REACTIONS (13)
  - RENAL INJURY [None]
  - FEAR [None]
  - INJURY [None]
  - STRESS [None]
  - MULTI-ORGAN FAILURE [None]
  - PAIN [None]
  - ANXIETY [None]
  - UNEVALUABLE EVENT [None]
  - ANHEDONIA [None]
  - DEATH [None]
  - RENAL FAILURE [None]
  - RENAL IMPAIRMENT [None]
  - EMOTIONAL DISTRESS [None]
